FAERS Safety Report 5416513-X (Version None)
Quarter: 2007Q3

REPORT INFORMATION
  Report Type: 
  Country: None (occurrence: None)
  Receive Date: 20070814
  Receipt Date: 20070808
  Transmission Date: 20080115
  Serious: Yes (Death)
  Sender: FDA-Public Use
  Company Number: 2005S1000872

PATIENT
  Age: 7 Day
  Sex: Male
  Weight: 0.67 kg

DRUGS (10)
  1. NITRIC OXIDE [Suspect]
     Indication: LUNG DISORDER
     Dosage: 5 PPM;CONT;INH
     Route: 055
     Dates: start: 20051211, end: 20051217
  2. NITRIC OXIDE [Suspect]
     Indication: PROPHYLAXIS
     Dosage: 5 PPM;CONT;INH
     Route: 055
     Dates: start: 20051211, end: 20051217
  3. IMIPENEM [Concomitant]
  4. GENTAMICIN [Concomitant]
  5. FUROSEMIDE [Concomitant]
  6. FENTANYL [Concomitant]
  7. DOPAMINE HCL [Concomitant]
  8. MIDAZOLAM HCL [Concomitant]
  9. RED BLOOD [Concomitant]
  10. INSULIN [Concomitant]

REACTIONS (7)
  - BRADYCARDIA NEONATAL [None]
  - CARDIAC ARREST NEONATAL [None]
  - CEREBRAL HAEMORRHAGE [None]
  - HAEMORRHAGE NEONATAL [None]
  - METABOLIC ACIDOSIS [None]
  - NEONATAL DISORDER [None]
  - PULMONARY HAEMORRHAGE [None]
